FAERS Safety Report 21768187 (Version 1)
Quarter: 2022Q4

REPORT INFORMATION
  Report Type: Spontaneous
  Country: FR (occurrence: FR)
  Receive Date: 20221222
  Receipt Date: 20221222
  Transmission Date: 20230113
  Serious: Yes (Death, Other)
  Sender: FDA-Public Use
  Company Number: FR-BAXTER-2022BAX026221

PATIENT
  Age: 57 Year
  Sex: Male

DRUGS (4)
  1. BORTEZOMIB [Suspect]
     Active Substance: BORTEZOMIB
     Indication: Product used for unknown indication
     Dosage: 2.3 MG/DOSE 2 DOSE(S)/WEEK 2 WEEK(S)/CYCLE, (TREATMENT LINE NUMBER 1, DURATION 7.1 MONTHS)
     Route: 065
     Dates: end: 20180417
  2. MELPHALAN [Suspect]
     Active Substance: MELPHALAN
     Indication: Product used for unknown indication
     Dosage: 140 MG/M2/DOSE 1 DOSE(S)/WEEK 1 WEEK(S)/CYCLE, (TREATMENT LINE NUMBER 1, DURATION, 7.1 MONTHS)
     Route: 065
     Dates: end: 20180417
  3. DEXAMETHASONE [Suspect]
     Active Substance: DEXAMETHASONE
     Indication: Product used for unknown indication
     Dosage: 20 MG/DOSE 4 DOSE(S)/WEEK 1WEEK(S)/CYCLE, (TREATMENT LINE NUMBER 1, DURATION 7.1 MONTHS)
     Route: 065
     Dates: end: 20180417
  4. CYCLOPHOSPHAMIDE [Suspect]
     Active Substance: CYCLOPHOSPHAMIDE
     Indication: Product used for unknown indication
     Dosage: 850 MG/DOSE 1DOSE(S)/WEEK 2 WEEK(S)/CYCLE, (TREATMENT LINE NUMBER 1, DURATION 7.1 MONTHS)
     Route: 065
     Dates: end: 20180417

REACTIONS (1)
  - Death [Fatal]

NARRATIVE: CASE EVENT DATE: 20180417
